FAERS Safety Report 18507720 (Version 2)
Quarter: 2020Q4

REPORT INFORMATION
  Report Type: Spontaneous
  Country: JP (occurrence: JP)
  Receive Date: 20201116
  Receipt Date: 20201231
  Transmission Date: 20210114
  Serious: Yes (Death, Life-Threatening, Hospitalization, Other)
  Sender: FDA-Public Use
  Company Number: JP-009507513-2010JPN001569J

PATIENT
  Age: 76 Year
  Sex: Female
  Weight: 71 kg

DRUGS (4)
  1. ALIMTA [Suspect]
     Active Substance: PEMETREXED DISODIUM
     Dosage: 822 MILLIGRAM, Q3W
     Route: 041
     Dates: start: 20191107, end: 20200514
  2. ALIMTA [Suspect]
     Active Substance: PEMETREXED DISODIUM
     Indication: NON-SMALL CELL LUNG CANCER STAGE IV
     Dosage: 820 MILLIGRAM, Q3W
     Route: 041
     Dates: start: 20190627, end: 20190905
  3. CARBOPLATIN. [Suspect]
     Active Substance: CARBOPLATIN
     Indication: NON-SMALL CELL LUNG CANCER STAGE IV
     Dosage: 420 MILLIGRAM, Q3W
     Route: 041
     Dates: start: 20190629, end: 20190905
  4. KEYTRUDA [Suspect]
     Active Substance: PEMBROLIZUMAB
     Indication: NON-SMALL CELL LUNG CANCER STAGE IV
     Dosage: 200 MILLIGRAM, Q3W
     Route: 041
     Dates: start: 20190627, end: 20200604

REACTIONS (8)
  - Malignant neoplasm progression [Unknown]
  - Altered state of consciousness [Not Recovered/Not Resolved]
  - Encephalitis [Not Recovered/Not Resolved]
  - Urinary tract infection [Unknown]
  - Thyroid disorder [Not Recovered/Not Resolved]
  - Metastases to meninges [Fatal]
  - IIIrd nerve paralysis [Not Recovered/Not Resolved]
  - Dizziness [Not Recovered/Not Resolved]

NARRATIVE: CASE EVENT DATE: 20190718
